FAERS Safety Report 25727417 (Version 1)
Quarter: 2025Q3

REPORT INFORMATION
  Report Type: Spontaneous
  Country: EU (occurrence: EU)
  Receive Date: 20250826
  Receipt Date: 20250826
  Transmission Date: 20251021
  Serious: Yes (Other)
  Sender: BOEHRINGER INGELHEIM
  Company Number: None

PATIENT
  Age: 69 Year
  Sex: Male

DRUGS (7)
  1. LINAGLIPTIN\METFORMIN HYDROCHLORIDE [Suspect]
     Active Substance: LINAGLIPTIN\METFORMIN HYDROCHLORIDE
     Indication: Type 2 diabetes mellitus
     Route: 048
     Dates: start: 20210415, end: 20230421
  2. DAPAGLIFLOZIN PROPANEDIOL\METFORMIN HYDROCHLORIDE [Suspect]
     Active Substance: DAPAGLIFLOZIN PROPANEDIOL\METFORMIN HYDROCHLORIDE
     Indication: Type 2 diabetes mellitus
     Route: 048
     Dates: start: 20230421, end: 20241204
  3. METFORMIN [Suspect]
     Active Substance: METFORMIN HYDROCHLORIDE
     Indication: Type 2 diabetes mellitus
     Route: 048
     Dates: start: 20160229, end: 20200127
  4. DAPAGLIFLOZIN\METFORMIN HYDROCHLORIDE [Suspect]
     Active Substance: DAPAGLIFLOZIN\METFORMIN HYDROCHLORIDE
     Indication: Type 2 diabetes mellitus
     Route: 048
     Dates: start: 20200127, end: 20210415
  5. PIRFENIDONA KERN PHARMA 801 MG COMPRIMIDOS RECUBIERTOS CON PELICULA EF [Concomitant]
     Indication: Idiopathic pulmonary fibrosis
     Route: 048
     Dates: start: 20240314
  6. PANTOPRAZOL ARISTO 40 MG COMPRIMIDOS GASTRORRESISTENTE EFG , 14 compri [Concomitant]
     Indication: Gastrooesophageal reflux disease
     Route: 048
  7. CARVEDILOL KERN PHARMA 25 mg COMPRIMIDOS RECUBIERTOS CON PELICULA EFG, [Concomitant]
     Indication: Product used for unknown indication
     Route: 048
     Dates: start: 20120323

REACTIONS (2)
  - Diarrhoea [Recovered/Resolved]
  - Eosinophilia [Recovered/Resolved]

NARRATIVE: CASE EVENT DATE: 20200101
